FAERS Safety Report 19509657 (Version 3)
Quarter: 2022Q1

REPORT INFORMATION
  Report Type: Report from Study
  Country: ES (occurrence: ES)
  Receive Date: 20210708
  Receipt Date: 20220203
  Transmission Date: 20220423
  Serious: Yes (Death, Hospitalization)
  Sender: FDA-Public Use
  Company Number: None

PATIENT
  Age: 74 Year
  Sex: Male

DRUGS (12)
  1. LINEZOLID [Suspect]
     Active Substance: LINEZOLID
     Indication: Acute respiratory distress syndrome
     Dosage: UNK
     Route: 042
     Dates: start: 20200330, end: 20200410
  2. MEROPENEM [Suspect]
     Active Substance: MEROPENEM
     Indication: Acute respiratory distress syndrome
     Dosage: UNK
     Route: 042
     Dates: start: 20200324, end: 20200413
  3. AZITHROMYCIN [Suspect]
     Active Substance: AZITHROMYCIN
     Indication: Acute respiratory distress syndrome
     Dosage: UNK
     Route: 042
     Dates: start: 20200323, end: 20200413
  4. PANTOPRAZOLE [Suspect]
     Active Substance: PANTOPRAZOLE
     Indication: Acute respiratory distress syndrome
     Dosage: 40 MILLIGRAM, QD
     Route: 042
     Dates: start: 20200323, end: 20200410
  5. AMIODARONE HYDROCHLORIDE [Suspect]
     Active Substance: AMIODARONE HYDROCHLORIDE
     Indication: Acute respiratory distress syndrome
     Dosage: UNK (150 MG/3 ML )
     Route: 042
     Dates: start: 20200405, end: 20200410
  6. DEXMEDETOMIDINE HYDROCHLORIDE [Concomitant]
     Active Substance: DEXMEDETOMIDINE HYDROCHLORIDE
     Indication: Light anaesthesia
     Dosage: UNK
     Route: 042
     Dates: start: 20200406, end: 20200409
  7. NORADRENALINA [NOREPINEPHRINE HYDROCHLORIDE] [Concomitant]
     Indication: Acute respiratory distress syndrome
     Dosage: UNK (CONCENTRATE AND SOLVENT FOR SOLUTION FOR INFUSION)
     Route: 042
     Dates: start: 20200326, end: 20200409
  8. FENTANYL CITRATE [Concomitant]
     Active Substance: FENTANYL CITRATE
     Indication: Light anaesthesia
     Dosage: UNK
     Route: 042
     Dates: start: 20200401, end: 20200410
  9. MIDAZOLAM HYDROCHLORIDE [Concomitant]
     Active Substance: MIDAZOLAM HYDROCHLORIDE
     Indication: Light anaesthesia
     Dosage: UNK
     Route: 042
     Dates: start: 20200327, end: 20200409
  10. CISATRACURIO ACCORD [Concomitant]
     Indication: Hypotonia
     Dosage: UNK
     Route: 042
     Dates: start: 20200324, end: 20200410
  11. DOPAMINA GRIFOLS [Concomitant]
     Indication: Acute respiratory distress syndrome
     Dosage: UNK
     Route: 042
     Dates: start: 20200324, end: 20200410
  12. DEXAMETHASONE [Concomitant]
     Active Substance: DEXAMETHASONE
     Indication: Acute respiratory distress syndrome
     Dosage: UNK
     Route: 042
     Dates: start: 20200325, end: 20200331

REACTIONS (1)
  - SJS-TEN overlap [Fatal]

NARRATIVE: CASE EVENT DATE: 20200410
